FAERS Safety Report 6963819-9 (Version None)
Quarter: 2010Q3

REPORT INFORMATION
  Report Type: 
  Country: None (occurrence: None)
  Receive Date: 20100830
  Receipt Date: 20100813
  Transmission Date: 20110219
  Serious: Yes (Life-Threatening, Hospitalization)
  Sender: FDA-Public Use
  Company Number: 2010PV000048

PATIENT
  Age: 8 Year
  Sex: Female

DRUGS (2)
  1. DEPOCYT [Suspect]
     Indication: ACUTE LYMPHOCYTIC LEUKAEMIA RECURRENT
     Dosage: 35 MG;INTH
     Route: 037
     Dates: start: 20090109, end: 20090402
  2. PREDNISOLONE [Concomitant]

REACTIONS (1)
  - CSF PRESSURE INCREASED [None]
